FAERS Safety Report 15095981 (Version 1)
Quarter: 2018Q3

REPORT INFORMATION
  Report Type: Report from Study
  Country: IL (occurrence: IL)
  Receive Date: 20180702
  Receipt Date: 20180702
  Transmission Date: 20181010
  Serious: Yes (Other)
  Sender: FDA-Public Use
  Company Number: IL-BAYER-2018-089436

PATIENT
  Age: 37 Year
  Sex: Female

DRUGS (3)
  1. MIRENA [Suspect]
     Active Substance: LEVONORGESTREL
     Indication: MENORRHAGIA
     Dosage: 20 MCG/24HR, CONT
     Route: 015
     Dates: start: 2018, end: 2018
  2. MIRENA [Suspect]
     Active Substance: LEVONORGESTREL
     Indication: MENORRHAGIA
     Dosage: 20 MCG/24HR, CONT
     Route: 015
  3. CABERGOLINE. [Concomitant]
     Active Substance: CABERGOLINE
     Dosage: 0.5 MG, UNK

REACTIONS (5)
  - Uterine haemorrhage [Recovered/Resolved]
  - Uterine inflammation [Recovered/Resolved]
  - Device dislocation [None]
  - Device expulsion [Recovered/Resolved]
  - Uterine pain [Recovered/Resolved]

NARRATIVE: CASE EVENT DATE: 2018
